FAERS Safety Report 6434055-X (Version None)
Quarter: 2009Q4

REPORT INFORMATION
  Report Type: 
  Country: None (occurrence: None)
  Receive Date: 20091110
  Receipt Date: 20091102
  Transmission Date: 20100525
  Serious: Yes (Hospitalization)
  Sender: FDA-Public Use
  Company Number: FR-ASTRAZENECA-2009SE24169

PATIENT
  Age: 79 Year
  Sex: Female

DRUGS (1)
  1. HYTACAND [Suspect]
     Route: 048
     Dates: end: 20090902

REACTIONS (4)
  - FALL [None]
  - HYPOTENSION [None]
  - LOSS OF CONSCIOUSNESS [None]
  - TRAUMATIC BRAIN INJURY [None]
